FAERS Safety Report 7403150-0 (Version None)
Quarter: 2011Q2

REPORT INFORMATION
  Report Type: 
  Country: None (occurrence: None)
  Receive Date: 20110408
  Receipt Date: 20110328
  Transmission Date: 20111010
  Serious: Yes (Death, Hospitalization)
  Sender: FDA-Public Use
  Company Number: FR-PFIZER INC-2011076018

PATIENT
  Age: 73 Year
  Sex: Female

DRUGS (4)
  1. ZANIDIP [Concomitant]
     Route: 065
  2. CORDARONE [Suspect]
     Indication: ATRIAL FIBRILLATION
     Dosage: 200 MG, UNK
     Route: 048
     Dates: start: 20110128
  3. PREVISCAN [Suspect]
     Indication: ATRIAL FIBRILLATION
     Dosage: 20 MG, 1X/DAY
     Route: 048
     Dates: start: 20110128
  4. BISOPROLOL FUMARATE [Concomitant]
     Dosage: UNK
     Route: 065

REACTIONS (1)
  - ISCHAEMIC STROKE [None]
